FAERS Safety Report 6888190-2 (Version None)
Quarter: 2010Q3

REPORT INFORMATION
  Report Type: 
  Country: None (occurrence: None)
  Receive Date: 20100730
  Receipt Date: 20100719
  Transmission Date: 20110219
  Serious: Yes (Other)
  Sender: FDA-Public Use
  Company Number: US-JNJFOC-20100708742

PATIENT
  Age: 46 Year
  Sex: Female
  Weight: 102.06 kg

DRUGS (5)
  1. EXTRA STRENGTH TYLENOL [Suspect]
     Indication: ARTHRITIS
     Dosage: EVERY 8 HOURS AS NEEDED
     Route: 048
  2. EXTRA STRENGTH TYLENOL [Suspect]
     Indication: JOINT INJURY
     Dosage: EVERY 8 HOURS AS NEEDED
     Route: 048
  3. EXTRA STRENGTH TYLENOL PM [Suspect]
     Indication: PAIN
     Dosage: 1 CAPLET AT BEDTIME
     Route: 048
  4. EXTRA STRENGTH TYLENOL PM [Suspect]
     Indication: INSOMNIA
     Dosage: 1 CAPLET AT BEDTIME
     Route: 048
  5. PRESCRIPTION MEDICATIONS UNSPECIFIED [Suspect]
     Indication: PRODUCT USED FOR UNKNOWN INDICATION
     Route: 065

REACTIONS (6)
  - ABDOMINAL PAIN UPPER [None]
  - ABDOMINAL RIGIDITY [None]
  - GASTRIC PERFORATION [None]
  - HAEMATEMESIS [None]
  - NAUSEA [None]
  - PRODUCT QUALITY ISSUE [None]
